FAERS Safety Report 8066487-0 (Version None)
Quarter: 2012Q1

REPORT INFORMATION
  Report Type: 
  Country: None (occurrence: None)
  Receive Date: 20120124
  Receipt Date: 20120118
  Transmission Date: 20120608
  Serious: No
  Sender: FDA-Public Use
  Company Number: US-PFIZER INC-2012015324

PATIENT
  Sex: Female

DRUGS (1)
  1. SUTENT [Suspect]
     Indication: MALIGNANT NEOPLASM OF RENAL PELVIS
     Dosage: 50 MG, UNK
     Dates: start: 20111229

REACTIONS (4)
  - NAUSEA [None]
  - RASH PRURITIC [None]
  - PARAESTHESIA [None]
  - DIARRHOEA [None]
